FAERS Safety Report 16075292 (Version 2)
Quarter: 2019Q1

REPORT INFORMATION
  Report Type: Report from Study
  Country: US (occurrence: US)
  Receive Date: 20190315
  Receipt Date: 20190326
  Transmission Date: 20190418
  Serious: Yes (Hospitalization)
  Sender: FDA-Public Use
  Company Number: US-ROCHE-2280947

PATIENT
  Age: 54 Year
  Sex: Female
  Weight: 80 kg

DRUGS (8)
  1. ATEZOLIZUMAB. [Suspect]
     Active Substance: ATEZOLIZUMAB
     Indication: PLASMA CELL MYELOMA
     Dosage: ON 27/FEB/2019, AT 09:25, SHE RECEIVED THE MOST RECENT DOSE (840 MG) OF ATEZOLIZUMAB PRIOR TO AE (AD
     Route: 042
     Dates: start: 20190227
  2. ACYCLOVIR. [Concomitant]
     Active Substance: ACYCLOVIR
     Route: 048
     Dates: start: 20170215
  3. POMALIDOMIDE [Suspect]
     Active Substance: POMALIDOMIDE
     Indication: PLASMA CELL MYELOMA
     Dosage: ON 07/MAR/2019, SHE RECEIVED THE MOST RECENT DOSE (4 MG) OF POMALIDOMIDE PRIOR TO AE (ADVERSE EVENT)
     Route: 048
     Dates: start: 20190226
  4. HYDROCHLOROTHIAZIDE. [Concomitant]
     Active Substance: HYDROCHLOROTHIAZIDE
     Indication: BLOOD PRESSURE MEASUREMENT
     Route: 048
     Dates: start: 20140718
  5. DARATUMUMAB [Suspect]
     Active Substance: DARATUMUMAB
     Indication: PLASMA CELL MYELOMA
     Dosage: ON 05/MAR/2019, AT 11:10, SHE RECEIVED THE MOST RECENT DOSE (1280 MG) OF DARATUMUMAB PRIOR TO AE (AD
     Route: 042
     Dates: start: 20190226
  6. GABAPENTIN. [Concomitant]
     Active Substance: GABAPENTIN
     Indication: PAIN
     Route: 048
     Dates: start: 20180320
  7. OXYCODONE [Concomitant]
     Active Substance: OXYCODONE
     Indication: PAIN
     Route: 048
     Dates: start: 20180815
  8. RANITIDINE. [Concomitant]
     Active Substance: RANITIDINE
     Indication: PAIN
     Route: 048
     Dates: start: 20171010

REACTIONS (1)
  - Lymphadenitis [Recovered/Resolved]

NARRATIVE: CASE EVENT DATE: 20190308
